FAERS Safety Report 4523592-0 (Version None)
Quarter: 2004Q4

REPORT INFORMATION
  Report Type: 
  Country: None (occurrence: None)
  Receive Date: 20041210
  Receipt Date: 20041206
  Transmission Date: 20050328
  Serious: Yes (Death, Other)
  Sender: FDA-Public Use
  Company Number: PHBS2004HK16425

PATIENT
  Age: 53 Year
  Sex: Female

DRUGS (6)
  1. METHOTREXATE [Concomitant]
  2. BUSULFAN [Concomitant]
  3. CYCLOPHOSPHAMIDE [Concomitant]
  4. IMATINIB MESILATE [Concomitant]
     Indication: BLAST CRISIS IN MYELOGENOUS LEUKAEMIA
  5. STEROIDS NOS [Concomitant]
  6. CYCLOSPORINE [Suspect]
     Indication: STEM CELL TRANSPLANT

REACTIONS (5)
  - BLAST CRISIS IN MYELOGENOUS LEUKAEMIA [None]
  - BRONCHIAL CARCINOMA [None]
  - GRAFT VERSUS HOST DISEASE [None]
  - LUNG ADENOCARCINOMA [None]
  - PLEURAL EFFUSION [None]
